FAERS Safety Report 5907383-1 (Version None)
Quarter: 2008Q3

REPORT INFORMATION
  Report Type: 
  Country: None (occurrence: None)
  Receive Date: 20080929
  Receipt Date: 20080922
  Transmission Date: 20090109
  Serious: Yes (Other)
  Sender: FDA-Public Use
  Company Number: CIR-GER-015-08

PATIENT
  Age: 54 Year
  Sex: Female

DRUGS (5)
  1. CIRCADIN (MELATONIN) (MELATONIN) [Suspect]
     Indication: SLEEP DISORDER
     Dosage: 2 MG, ORAL
     Route: 048
     Dates: start: 20080819
  2. CYMBALTA [Concomitant]
  3. VENLAFAXINE HCL [Concomitant]
  4. BILKALM (ZOLPIDEM) [Concomitant]
  5. TAVOR (LORAZEPAM) [Concomitant]

REACTIONS (5)
  - DRUG ABUSE [None]
  - MOOD ALTERED [None]
  - PANIC ATTACK [None]
  - RESTLESSNESS [None]
  - SUICIDAL IDEATION [None]
